FAERS Safety Report 23792657 (Version 3)
Quarter: 2024Q2

REPORT INFORMATION
  Report Type: Spontaneous
  Country: CA (occurrence: CA)
  Receive Date: 20240429
  Receipt Date: 20240621
  Transmission Date: 20240715
  Serious: Yes (Other)
  Sender: FDA-Public Use
  Company Number: CA-CELLTRION INC.-2024CA003987

PATIENT

DRUGS (13)
  1. INFLECTRA [Suspect]
     Active Substance: INFLIXIMAB-DYYB
     Indication: Crohn^s disease
     Dosage: 400 MG, 0, 2 WEEKS (RECEIVED TWO DOSES IN HOSPITAL)
     Route: 042
     Dates: start: 20201113, end: 20201119
  2. INFLECTRA [Suspect]
     Active Substance: INFLIXIMAB-DYYB
     Dosage: 400 MG, AT WEEK 6, FOLLOWED BY EVERY 4 WEEKS
     Route: 042
     Dates: start: 20201221
  3. INFLECTRA [Suspect]
     Active Substance: INFLIXIMAB-DYYB
     Dosage: UNK
     Route: 042
     Dates: start: 20231103
  4. INFLECTRA [Suspect]
     Active Substance: INFLIXIMAB-DYYB
     Dosage: 400 MG, EVERY 4 WEEKS
     Route: 042
     Dates: start: 20240319
  5. INFLECTRA [Suspect]
     Active Substance: INFLIXIMAB-DYYB
     Dosage: 400 MG, EVERY 4 WEEKS
     Route: 042
     Dates: start: 20240418
  6. INFLECTRA [Suspect]
     Active Substance: INFLIXIMAB-DYYB
     Dosage: 400 MG, EVERY 4 WEEKS (AFTER 4 WEEKS)
     Route: 042
     Dates: start: 20240516
  7. INFLECTRA [Suspect]
     Active Substance: INFLIXIMAB-DYYB
     Dosage: 400 MG AT WEEK 6, FOLLOWED BY EVERY 4 WEEKS (400 MG AFTER 4 WEEKS)
     Route: 042
     Dates: start: 20240613
  8. ALENDRONATE [Concomitant]
     Active Substance: ALENDRONATE SODIUM
     Dosage: 70 MG, WEEKLY
     Route: 048
  9. METHADONE [Concomitant]
     Active Substance: METHADONE HYDROCHLORIDE
     Indication: Pain
     Dosage: 40 MG, 3X/DAY
     Route: 048
  10. PANTOPRAZOLE [Concomitant]
     Active Substance: PANTOPRAZOLE
     Dosage: 40 MG, 1X/DAY
     Route: 048
  11. PREDNISONE [Concomitant]
     Active Substance: PREDNISONE
     Dosage: 1 DF (40 MG OD FOR 7 DAYS FOLLOWED BY TAPERING BY 5 MG PER WEEK )
     Route: 048
  12. RIVAROXABAN [Concomitant]
     Active Substance: RIVAROXABAN
     Indication: Embolism venous
     Dosage: 1 DF (15 MG BID FOR 2 WEEKS, FOLLOWED BY 20 MG OD)
     Route: 048
     Dates: start: 20201118
  13. THIAMINE [Concomitant]
     Active Substance: THIAMINE
     Dosage: 200 MG, 1X/DAY
     Route: 048

REACTIONS (5)
  - Uveitis [Not Recovered/Not Resolved]
  - Condition aggravated [Recovering/Resolving]
  - Anal fissure [Not Recovered/Not Resolved]
  - Arthralgia [Not Recovered/Not Resolved]
  - Product dose omission issue [Unknown]

NARRATIVE: CASE EVENT DATE: 20240418
